FAERS Safety Report 4315251-4 (Version None)
Quarter: 2004Q1

REPORT INFORMATION
  Report Type: 
  Country: None (occurrence: None)
  Receive Date: 20040309
  Receipt Date: 20040220
  Transmission Date: 20041129
  Serious: Yes (Hospitalization)
  Sender: FDA-Public Use
  Company Number: BRO-007156

PATIENT
  Age: 63 Year
  Sex: Male

DRUGS (9)
  1. IOPAMIDOL-370 [Suspect]
     Indication: ANGINA PECTORIS
     Dosage: 325 ML, A FEW MINS
     Route: 022
     Dates: start: 20040113, end: 20040113
  2. IOPAMIDOL-370 [Suspect]
     Indication: ARTERIOGRAM CORONARY
     Dosage: 325 ML, A FEW MINS
     Route: 022
     Dates: start: 20040113, end: 20040113
  3. IOPAMIDOL-370 [Suspect]
     Dosage: 105 ML, A FEW MINS
     Route: 022
     Dates: start: 20040115, end: 20040115
  4. TICLOPIDINE HCL [Concomitant]
  5. ASPIRIN [Concomitant]
  6. SIGMAR (NICORANDIL) [Concomitant]
  7. ENALAPRIL MALEATE [Concomitant]
  8. LIPITOR [Concomitant]
  9. FAROM [Concomitant]

REACTIONS (2)
  - ANGINA PECTORIS [None]
  - ERYTHEMA MULTIFORME [None]
